FAERS Safety Report 12541995 (Version 3)
Quarter: 2017Q1

REPORT INFORMATION
  Report Type: Spontaneous
  Country: US (occurrence: US)
  Receive Date: 20160708
  Receipt Date: 20170206
  Transmission Date: 20170428
  Serious: Yes (Hospitalization)
  Sender: FDA-Public Use
  Company Number: US-ACTELION-A-US2016-139092

PATIENT
  Age: 70 Year
  Sex: Female

DRUGS (1)
  1. TRACLEER [Suspect]
     Active Substance: BOSENTAN
     Indication: PULMONARY ARTERIAL HYPERTENSION
     Dosage: 125 MG, BID
     Route: 048
     Dates: start: 20090118

REACTIONS (9)
  - Malaise [Unknown]
  - Pain [Unknown]
  - Hip surgery [Not Recovered/Not Resolved]
  - Sciatica [Unknown]
  - Hip fracture [Unknown]
  - Foot fracture [Recovering/Resolving]
  - Lower limb fracture [Not Recovered/Not Resolved]
  - Fall [Recovering/Resolving]
  - Dialysis [Unknown]

NARRATIVE: CASE EVENT DATE: 20160515
